FAERS Safety Report 10476907 (Version 2)
Quarter: 2014Q4

REPORT INFORMATION
  Report Type: Report from Study
  Country: PL (occurrence: PL)
  Receive Date: 20140926
  Receipt Date: 20141028
  Transmission Date: 20150528
  Serious: Yes (Other)
  Sender: FDA-Public Use
  Company Number: PL-AMGEN-POLCT2014072914

PATIENT
  Age: 66 Year
  Sex: Female

DRUGS (3)
  1. CISPLATINUM [Concomitant]
     Active Substance: CISPLATIN
     Dosage: 45 MG, EVERY 21-28 DAYS
     Route: 042
     Dates: start: 20140116
  2. DARBEPOETIN ALFA [Suspect]
     Active Substance: DARBEPOETIN ALFA
     Indication: ANAEMIA OF MALIGNANT DISEASE
     Dosage: 500 MUG, ONCE IN 21 DAYS
     Route: 065
     Dates: start: 20140304
  3. ETOPOSIDUM [Concomitant]
     Dosage: 149 MG, EVERY 21-28 DAYS
     Route: 042
     Dates: start: 20140116

REACTIONS (1)
  - Accidental overdose [Recovered/Resolved]

NARRATIVE: CASE EVENT DATE: 20140507
